FAERS Safety Report 22116357 (Version 1)
Quarter: 2023Q1

REPORT INFORMATION
  Report Type: Spontaneous
  Country: BE (occurrence: BE)
  Receive Date: 20230320
  Receipt Date: 20230320
  Transmission Date: 20230418
  Serious: Yes (Other)
  Sender: FDA-Public Use
  Company Number: None

PATIENT
  Age: 27 Year
  Sex: Male

DRUGS (3)
  1. AZITHROMYCIN [Suspect]
     Active Substance: AZITHROMYCIN
     Indication: Gonorrhoea
     Dosage: 2000 MG, SINGLE (4 TABLETS IN ONE INTAKE)
     Route: 048
     Dates: start: 20220921, end: 20220921
  2. FLUCLOXACILLIN SODIUM [Suspect]
     Active Substance: FLUCLOXACILLIN SODIUM
     Indication: Dermal cyst
     Dosage: 1 DF, 4X/DAY
     Dates: start: 20220914, end: 20220923
  3. CEFTRIAXONE SODIUM [Concomitant]
     Active Substance: CEFTRIAXONE SODIUM
     Indication: Gonorrhoea
     Dosage: 500 MG, SINGLE, GIVEN SIX DAYS BEFORE,SOLVENT CONTAINS LIDOCAIN.

REACTIONS (2)
  - Hepatitis fulminant [Recovered/Resolved]
  - Malaise [Unknown]

NARRATIVE: CASE EVENT DATE: 20220922
